FAERS Safety Report 6770500-8 (Version None)
Quarter: 2010Q2

REPORT INFORMATION
  Report Type: 
  Country: None (occurrence: None)
  Receive Date: 20100608
  Receipt Date: 20100601
  Transmission Date: 20101027
  Serious: No
  Sender: FDA-Public Use
  Company Number: A0860332A

PATIENT
  Sex: Male

DRUGS (1)
  1. CALCIUM CARBONATE [Suspect]
     Indication: GASTROOESOPHAGEAL REFLUX DISEASE

REACTIONS (2)
  - CHOKING [None]
  - RETCHING [None]
